FAERS Safety Report 9726168 (Version 1)
Quarter: 2013Q4

REPORT INFORMATION
  Report Type: Spontaneous
  Country: US (occurrence: None)
  Receive Date: 20131202
  Receipt Date: 20131202
  Transmission Date: 20140711
  Serious: Yes (Life-Threatening, Hospitalization)
  Sender: FDA-Public Use
  Company Number: None

PATIENT
  Sex: Male
  Weight: 90 kg

DRUGS (2)
  1. METFORMIN [Suspect]
     Indication: DIABETES MELLITUS
     Dosage: SQ
  2. LANTUS [Suspect]

REACTIONS (6)
  - Dizziness [None]
  - Asthenia [None]
  - Hypoglycaemia [None]
  - Escherichia urinary tract infection [None]
  - Cardiomegaly [None]
  - Cardiac failure congestive [None]
